FAERS Safety Report 4316729-X (Version None)
Quarter: 2004Q1

REPORT INFORMATION
  Report Type: 
  Country: None (occurrence: None)
  Receive Date: 20040311
  Receipt Date: 20040303
  Transmission Date: 20041129
  Serious: Yes (Hospitalization)
  Sender: FDA-Public Use
  Company Number: 04-062

PATIENT
  Sex: Male

DRUGS (1)
  1. DOXEPIN HCL CAPSULES, 100 MG [Suspect]
     Dosage: 1 X DAY
     Dates: start: 20040303

REACTIONS (1)
  - LOSS OF CONSCIOUSNESS [None]
